FAERS Safety Report 6913027-2 (Version None)
Quarter: 2010Q3

REPORT INFORMATION
  Report Type: 
  Country: None (occurrence: None)
  Receive Date: 20100806
  Receipt Date: 20090616
  Transmission Date: 20110219
  Serious: No
  Sender: FDA-Public Use
  Company Number: US-PFIZER INC-2009196051

PATIENT
  Sex: Female
  Weight: 116.6 kg

DRUGS (8)
  1. GLIPIZIDE [Suspect]
     Indication: DIABETES MELLITUS
     Dosage: 10 MG, 2X/DAY
     Dates: start: 20050101
  2. SYNTHROID [Concomitant]
     Dosage: UNK
  3. CENTRUM SILVER [Concomitant]
     Dosage: UNK
  4. ACETYLSALICYLIC ACID [Concomitant]
     Dosage: UNK
  5. LINSEED OIL [Concomitant]
     Dosage: UNK
  6. PRINZIDE [Concomitant]
     Dosage: UNK
  7. SIMVASTATIN [Concomitant]
     Dosage: UNK
  8. VITACAL [Concomitant]
     Dosage: UNK

REACTIONS (2)
  - GLYCOSYLATED HAEMOGLOBIN INCREASED [None]
  - MALAISE [None]
